FAERS Safety Report 9232840 (Version 1)
Quarter: 2013Q1

REPORT INFORMATION
  Report Type: Spontaneous
  Country: US (occurrence: None)
  Receive Date: 20121031
  Receipt Date: 20121031
  Transmission Date: 20140127
  Serious: No
  Sender: FDA-Public Use
  Company Number: PHEH2012US014853

PATIENT
  Age: 50 Year
  Sex: Female
  Weight: 68.5 kg

DRUGS (7)
  1. GILENYA [Suspect]
     Indication: MULTIPLE SCLEROSIS
     Route: 048
     Dates: start: 20120626
  2. EFFEXOR (VENLAFAXINE HYDROCHLORIDE) UNKNOWN [Concomitant]
  3. LITHIUM (LITHIUM) UNKNOWN [Concomitant]
  4. ENABLEX (DARIFENACIN HYDROBROMIDE) [Concomitant]
  5. KLONOPIN (CLONAZEPAM) (TABLETS) [Concomitant]
  6. VITAMIN D (ERGOCALCIFEROL) [Concomitant]
  7. MAGNESIUM (MAGNESIUM) TABLET [Concomitant]

REACTIONS (2)
  - Abnormal behaviour [None]
  - Drug ineffective [None]
